FAERS Safety Report 10207765 (Version 1)
Quarter: 2014Q2

REPORT INFORMATION
  Report Type: Spontaneous
  Country: US (occurrence: None)
  Receive Date: 20140527
  Receipt Date: 20140527
  Transmission Date: 20141212
  Serious: Yes (Hospitalization, Other)
  Sender: FDA-Public Use
  Company Number: None

PATIENT
  Age: 65 Year
  Sex: Female

DRUGS (9)
  1. AUGMENTIN [Suspect]
     Indication: INFECTION
     Dates: start: 20111227, end: 20120106
  2. AZELASTINE NASAL SPRAY [Concomitant]
  3. CALCITONIN [Concomitant]
  4. KLOR-CON [Concomitant]
  5. LEVOTHYROXINE [Concomitant]
  6. LEXAPRO [Concomitant]
  7. TRIAMTERENE/HCTZ [Concomitant]
  8. NEXIUM [Concomitant]
  9. SYMBICORT [Concomitant]

REACTIONS (2)
  - Drug-induced liver injury [None]
  - Hepatic failure [None]
